FAERS Safety Report 4567125-1 (Version None)
Quarter: 2005Q1

REPORT INFORMATION
  Report Type: 
  Country: None (occurrence: None)
  Receive Date: 20050201
  Receipt Date: 20041206
  Transmission Date: 20050727
  Serious: Yes (Hospitalization)
  Sender: FDA-Public Use
  Company Number: US-SANOFISYNTHELABO-F01200403852

PATIENT
  Sex: Female
  Weight: 37.3 kg

DRUGS (10)
  1. PRILOSEC [Concomitant]
     Dosage: 20 MG
     Route: 048
  2. PREVACID [Concomitant]
     Indication: ANTACID THERAPY
     Dosage: 30 MG
     Route: 048
     Dates: start: 20041203, end: 20041204
  3. MS CONTIN [Concomitant]
     Indication: PAIN
     Route: 048
     Dates: start: 20041203, end: 20041204
  4. PERCOCET [Concomitant]
     Indication: PAIN
     Dosage: 5/325 MG
     Route: 048
     Dates: start: 20041203, end: 20041203
  5. DIFLUCAN [Concomitant]
     Indication: MUCOSAL INFLAMMATION
     Dosage: 100 MG
     Route: 048
     Dates: start: 20041203, end: 20041204
  6. LASIX [Concomitant]
     Indication: OEDEMA
     Dosage: 20 MG
     Route: 048
     Dates: start: 20041203, end: 20041204
  7. PREDNISONE [Concomitant]
     Route: 048
     Dates: start: 20041203, end: 20041204
  8. HEP-LOCK [Concomitant]
     Dosage: 10 UNITS/ML Q6HRS
     Route: 042
     Dates: start: 20041203, end: 20041204
  9. GEMCITABINE [Suspect]
     Route: 042
     Dates: start: 20041122, end: 20041122
  10. OXALIPLATIN [Suspect]
     Route: 042
     Dates: start: 20041115, end: 20041115

REACTIONS (11)
  - ARTERIAL THROMBOSIS [None]
  - ASTHENIA [None]
  - BALANCE DISORDER [None]
  - CONDITION AGGRAVATED [None]
  - DRUG TOXICITY [None]
  - HYPOAESTHESIA [None]
  - HYPONATRAEMIA [None]
  - OEDEMA PERIPHERAL [None]
  - PARAESTHESIA [None]
  - RAYNAUD'S PHENOMENON [None]
  - WEIGHT DECREASED [None]
